FAERS Safety Report 14288090 (Version 1)
Quarter: 2017Q4

REPORT INFORMATION
  Report Type: Report from Study
  Country: None (occurrence: GB)
  Receive Date: 20171215
  Receipt Date: 20171215
  Transmission Date: 20180321
  Serious: Yes (Hospitalization)
  Sender: FDA-Public Use
  Company Number: GB-ABBVIE-17K-167-2187950-00

PATIENT
  Age: 65 Year
  Sex: Female

DRUGS (4)
  1. HUMIRA [Suspect]
     Active Substance: ADALIMUMAB
     Indication: RHEUMATOID ARTHRITIS
     Route: 058
     Dates: start: 20140815, end: 20170221
  2. PREDNISOLONE. [Concomitant]
     Active Substance: PREDNISOLONE
  3. SULPHASALAZINE [Concomitant]
     Active Substance: SULFASALAZINE
     Indication: PRODUCT USED FOR UNKNOWN INDICATION
  4. PREDNISOLONE. [Concomitant]
     Active Substance: PREDNISOLONE
     Indication: PRODUCT USED FOR UNKNOWN INDICATION

REACTIONS (5)
  - Arthritis bacterial [Unknown]
  - Rheumatoid arthritis [Unknown]
  - Feeling hot [Unknown]
  - Back pain [Unknown]
  - Groin pain [Unknown]

NARRATIVE: CASE EVENT DATE: 20170216
